FAERS Safety Report 22896528 (Version 2)
Quarter: 2024Q3

REPORT INFORMATION
  Report Type: Spontaneous
  Country: AU (occurrence: AU)
  Receive Date: 20230901
  Receipt Date: 20240705
  Transmission Date: 20241016
  Serious: Yes (Other)
  Sender: MERCK
  Company Number: AU-009507513-2308AUS010718

PATIENT
  Age: 84 Year
  Sex: Female

DRUGS (2)
  1. DAPTOMYCIN [Suspect]
     Active Substance: DAPTOMYCIN
     Indication: Evidence based treatment
  2. POSACONAZOLE [Concomitant]
     Active Substance: POSACONAZOLE

REACTIONS (3)
  - Pathogen resistance [Unknown]
  - Renal impairment [Unknown]
  - Product use in unapproved indication [Unknown]
